FAERS Safety Report 5350728-4 (Version None)
Quarter: 2007Q2

REPORT INFORMATION
  Report Type: 
  Country: None (occurrence: None)
  Receive Date: 20070608
  Receipt Date: 20070601
  Transmission Date: 20071010
  Serious: No
  Sender: FDA-Public Use
  Company Number: JP-ELI_LILLY_AND_COMPANY-JP200706000996

PATIENT
  Age: 73 Year
  Sex: Female
  Weight: 35.5 kg

DRUGS (4)
  1. EVISTA [Suspect]
     Indication: OSTEOPOROSIS
     Dosage: 60 MG, DAILY (1/D)
     Route: 048
     Dates: start: 20070411, end: 20070527
  2. MEVALOTIN /JPN/ [Concomitant]
     Indication: HYPERLIPIDAEMIA
     Dosage: 10 MG, DAILY (1/D)
     Route: 048
     Dates: start: 20031006
  3. EPADEL [Concomitant]
     Indication: ARTERIOSCLEROSIS OBLITERANS
     Dosage: 300 MG, EVERY 4 HRS
     Route: 048
     Dates: start: 20031006
  4. ALFAROL [Concomitant]
     Indication: OSTEOPOROSIS
     Dosage: 1 UG, DAILY (1/D)
     Route: 048
     Dates: start: 20041022

REACTIONS (1)
  - RETINAL VEIN OCCLUSION [None]
